FAERS Safety Report 4474061-8 (Version None)
Quarter: 2004Q4

REPORT INFORMATION
  Report Type: 
  Country: None (occurrence: None)
  Receive Date: 20041008
  Receipt Date: 20040924
  Transmission Date: 20050328
  Serious: Yes (Hospitalization)
  Sender: FDA-Public Use
  Company Number: A0527248A

PATIENT
  Age: 61 Year
  Sex: Female

DRUGS (1)
  1. COMMIT [Suspect]
     Indication: EX-SMOKER
     Dosage: TRANSBUCCAL
     Route: 002
     Dates: start: 20030501

REACTIONS (8)
  - AGE INDETERMINATE MYOCARDIAL INFARCTION [None]
  - BURNING SENSATION [None]
  - CAROTID ARTERY OCCLUSION [None]
  - CAROTID BRUIT [None]
  - COLITIS [None]
  - HYPERTENSION [None]
  - LYME DISEASE [None]
  - TRANSIENT ISCHAEMIC ATTACK [None]
